FAERS Safety Report 11595251 (Version 1)
Quarter: 2015Q4

REPORT INFORMATION
  Report Type: Spontaneous
  Country: FR (occurrence: FR)
  Receive Date: 20151006
  Receipt Date: 20151006
  Transmission Date: 20160304
  Serious: Yes (Other)
  Sender: FDA-Public Use
  Company Number: FR-ORION CORPORATION ORION PHARMA-ENTC2015-0552

PATIENT
  Sex: Female

DRUGS (7)
  1. STALEVO [Suspect]
     Active Substance: CARBIDOPA\ENTACAPONE\LEVODOPA
     Dosage: DOSE INCREASED
     Route: 048
     Dates: start: 20150120
  2. SIFROL [Suspect]
     Active Substance: PRAMIPEXOLE
     Route: 065
     Dates: end: 201502
  3. MADOPAR [Suspect]
     Active Substance: BENSERAZIDE HYDROCHLORIDE\LEVODOPA
     Route: 065
     Dates: start: 20140120
  4. SIFROL [Suspect]
     Active Substance: PRAMIPEXOLE
     Indication: PARKINSONISM
     Route: 065
     Dates: start: 2006
  5. SINEMET [Suspect]
     Active Substance: CARBIDOPA\LEVODOPA
     Indication: PARKINSONISM
     Route: 048
     Dates: start: 2006, end: 2013
  6. STALEVO [Suspect]
     Active Substance: CARBIDOPA\ENTACAPONE\LEVODOPA
     Route: 048
     Dates: start: 2013
  7. SIFROL [Suspect]
     Active Substance: PRAMIPEXOLE
     Dosage: DOSE REDUCED
     Route: 065

REACTIONS (6)
  - Compulsive shopping [Unknown]
  - Bulimia nervosa [Unknown]
  - Dysphonia [Unknown]
  - Somnolence [Unknown]
  - Depression [Unknown]
  - On and off phenomenon [Unknown]

NARRATIVE: CASE EVENT DATE: 2015
